FAERS Safety Report 5745104-6 (Version None)
Quarter: 2008Q2

REPORT INFORMATION
  Report Type: 
  Country: None (occurrence: None)
  Receive Date: 20080521
  Receipt Date: 20080517
  Transmission Date: 20081010
  Serious: Yes (Other)
  Sender: FDA-Public Use
  Company Number: PHBS2007FI19301

PATIENT
  Sex: Female

DRUGS (10)
  1. MIACALCIN [Suspect]
     Indication: OSTEOPENIA
     Dosage: 200 IU, QD
     Route: 045
  2. NEXIUM [Concomitant]
     Dosage: 400MG, QD
  3. ESCITALOPRAM [Concomitant]
     Dosage: 10MG, QD
  4. DOLMED [Concomitant]
     Dosage: 5 MG, BID
  5. ESTRENA [Concomitant]
     Dosage: GEL
  6. NORITREN [Concomitant]
     Dosage: 10MG, QD
  7. NORGESIC [Concomitant]
     Dosage: 1 TABLET, QD
  8. NEURONTIN [Concomitant]
     Indication: NEURALGIA
     Dosage: 300 MG, BID
  9. ZOPINOX [Concomitant]
     Dosage: 7.5 MG
  10. MULTIKALKKI [Concomitant]
     Dosage: UNK, QD
     Route: 048

REACTIONS (2)
  - MENINGIOMA [None]
  - SURGERY [None]
